FAERS Safety Report 6194836-7 (Version None)
Quarter: 2009Q2

REPORT INFORMATION
  Report Type: 
  Country: None (occurrence: None)
  Receive Date: 20090519
  Receipt Date: 20080625
  Transmission Date: 20091009
  Serious: No
  Sender: FDA-Public Use
  Company Number: US-TYCO HEALTHCARE/MALLINCKRODT-T200801061

PATIENT

DRUGS (5)
  1. METHADONE [Suspect]
     Indication: OSTEOARTHRITIS
     Dosage: 4 TABLET, BID
     Route: 048
     Dates: start: 20080101, end: 20080603
  2. XANAX [Concomitant]
  3. AMBIEN [Concomitant]
  4. MORPHINE [Concomitant]
  5. CYMBALTA [Concomitant]

REACTIONS (6)
  - ABDOMINAL PAIN UPPER [None]
  - DIARRHOEA [None]
  - FEELING ABNORMAL [None]
  - FEELING OF BODY TEMPERATURE CHANGE [None]
  - PARAESTHESIA [None]
  - PRURITUS [None]
